FAERS Safety Report 5323231-5 (Version None)
Quarter: 2007Q2

REPORT INFORMATION
  Report Type: 
  Country: None (occurrence: None)
  Receive Date: 20070220
  Receipt Date: 20070116
  Transmission Date: 20071010
  Serious: No
  Sender: FDA-Public Use
  Company Number: WAES 0701USA02027

PATIENT
  Age: 77 Year
  Sex: Female

DRUGS (3)
  1. JANUVIA [Suspect]
     Indication: BLOOD GLUCOSE
     Dosage: 50 MG/DAILY/PO
     Route: 048
     Dates: start: 20061201
  2. [THERAPY UNSPECIFIED] [Concomitant]
  3. GLYBURIDE [Concomitant]

REACTIONS (2)
  - HEADACHE [None]
  - WRONG TECHNIQUE IN DRUG USAGE PROCESS [None]
